FAERS Safety Report 5695019-7 (Version None)
Quarter: 2008Q2

REPORT INFORMATION
  Report Type: 
  Country: None (occurrence: None)
  Receive Date: 20080404
  Receipt Date: 20080331
  Transmission Date: 20081010
  Serious: Yes (Hospitalization)
  Sender: FDA-Public Use
  Company Number: GB-ROCHE-556084

PATIENT
  Sex: Female
  Weight: 113 kg

DRUGS (9)
  1. ORLISTAT [Suspect]
     Indication: OBESITY
     Route: 048
     Dates: start: 20080206, end: 20080220
  2. ORLISTAT [Suspect]
     Route: 048
  3. LISINOPRIL [Concomitant]
     Indication: HYPERTENSION
     Route: 048
  4. ASPIRIN [Concomitant]
     Route: 048
  5. TILDIEM [Concomitant]
     Indication: PALPITATIONS
     Dosage: REPORTED AS TILDIEM LA300
     Route: 048
  6. OMEPRAZOLE [Concomitant]
     Route: 048
  7. LEVOTHYROXINE SODIUM [Concomitant]
     Indication: THYROID CANCER
     Route: 048
  8. BUSCOPAN [Concomitant]
     Route: 048
  9. UNSPECIFIED DRUG [Concomitant]
     Dosage: REPORTED AS WIND SETTLERS AND TAKEN WHEN NEEDED.
     Route: 048

REACTIONS (1)
  - MYOCARDIAL INFARCTION [None]
